FAERS Safety Report 9420396 (Version 1)
Quarter: 2013Q3

REPORT INFORMATION
  Report Type: Spontaneous
  Country: US (occurrence: US)
  Receive Date: 20130725
  Receipt Date: 20130725
  Transmission Date: 20140515
  Serious: No
  Sender: FDA-Public Use
  Company Number: US-ABBOTT-13P-163-1058789-00

PATIENT
  Age: 59 Year
  Sex: Female
  Weight: 61.29 kg

DRUGS (1)
  1. SYNTHROID [Suspect]
     Indication: BLOOD THYROID STIMULATING HORMONE DECREASED
     Dates: start: 201301, end: 20130303

REACTIONS (2)
  - Constipation [Recovering/Resolving]
  - Abdominal distension [Recovering/Resolving]
